FAERS Safety Report 9422168 (Version 1)
Quarter: 2013Q3

REPORT INFORMATION
  Report Type: Spontaneous
  Country: US (occurrence: None)
  Receive Date: 20130725
  Receipt Date: 20130725
  Transmission Date: 20140515
  Serious: Yes (Other)
  Sender: FDA-Public Use
  Company Number: None

PATIENT
  Age: 30 Year
  Sex: Female
  Weight: 105.24 kg

DRUGS (3)
  1. PARAGARD T380-A [Suspect]
  2. HYDROXYZINE [Concomitant]
  3. ZYRTEC [Concomitant]

REACTIONS (4)
  - Rash [None]
  - Allergy to metals [None]
  - Urticaria [None]
  - Drug ineffective [None]
